FAERS Safety Report 15306477 (Version 1)
Quarter: 2018Q3

REPORT INFORMATION
  Report Type: Report from Study
  Country: IT (occurrence: IT)
  Receive Date: 20180822
  Receipt Date: 20180822
  Transmission Date: 20181010
  Serious: Yes (Other)
  Sender: FDA-Public Use
  Company Number: IT-ROCHE-2103559

PATIENT
  Age: 31 Year
  Sex: Female
  Weight: 57.5 kg

DRUGS (5)
  1. OCRELIZUMAB. [Suspect]
     Active Substance: OCRELIZUMAB
     Indication: RELAPSING-REMITTING MULTIPLE SCLEROSIS
     Dosage: MOST RECENT DOSE OF OCRELIZUMAB PRIOR TO THIS EVENT ONSET: 05/MAR/2018.?ADMINISTERED AS TWO 300 MG I
     Route: 042
     Dates: start: 20170324
  2. TAPAZOLE [Concomitant]
     Active Substance: METHIMAZOLE
     Route: 048
     Dates: start: 2009
  3. METHYLPREDNISOLONE. [Suspect]
     Active Substance: METHYLPREDNISOLONE
     Indication: PREMEDICATION
     Dosage: SUBSEQUENT DOSE RECEIVED ON 20/SEP/2017, 06/APR/2017.?MOST RECENT DOSE OF METHYLPREDNISOLONE PRIOR T
     Route: 042
     Dates: start: 20170324
  4. CHLORPHENAMINE [Concomitant]
     Active Substance: CHLORPHENIRAMINE MALEATE
     Dosage: SUBSEQUENT DOSE RECEIVED ON: 20/SEP/2017, 06/APR/2017 AND 05/MAR/2018
     Route: 042
     Dates: start: 20170324
  5. PARACETAMOL [Concomitant]
     Active Substance: ACETAMINOPHEN
     Dosage: SUBSEQUENT DOSE RECEIVED ON: 20/SEP/2017, 06/APR/2017 AND 05/MAR/2018
     Route: 048
     Dates: start: 20170324

REACTIONS (1)
  - Squamous cell carcinoma of the cervix [Recovered/Resolved]

NARRATIVE: CASE EVENT DATE: 20180323
